FAERS Safety Report 7551088-0 (Version None)
Quarter: 2011Q2

REPORT INFORMATION
  Report Type: 
  Country: None (occurrence: None)
  Receive Date: 20110616
  Receipt Date: 20110613
  Transmission Date: 20111010
  Serious: Yes (Death, Hospitalization, Disabling, Other)
  Sender: FDA-Public Use
  Company Number: US-BRISTOL-MYERS SQUIBB COMPANY-15498330

PATIENT
  Age: 82 Year
  Sex: Female

DRUGS (8)
  1. CALCIUM CARBONATE [Concomitant]
     Dosage: 22OCT08,30OCT08,19NOV08,29DEC08,27MAR09,28MAR09,25SEP09.
     Route: 048
     Dates: start: 20040101
  2. BONIVA [Concomitant]
     Indication: BONE METABOLISM DISORDER
     Dosage: 28MAR09,25SEP09.
     Route: 048
     Dates: start: 20090519
  3. WARFARIN SODIUM [Suspect]
     Indication: THROMBOSIS PROPHYLAXIS
     Dosage: INTERRUPTED ON 18JAN11,04FEB11.
     Route: 048
     Dates: start: 20081030
  4. ACTONEL [Concomitant]
     Indication: BONE METABOLISM DISORDER
     Dosage: 22OCT08,30OCT08,19NOV08,27MAR09.
     Route: 048
     Dates: start: 20040101
  5. PLACEBO [Suspect]
     Indication: THROMBOSIS PROPHYLAXIS
     Dosage: INTERRUPTED ON 15JAN11,18JAN11,04FEB11,24JAN11,17JAN11,20JAN11,02FEB11.
     Route: 048
     Dates: start: 20081030
  6. FUROSEMIDE [Concomitant]
  7. AROMASIN [Concomitant]
     Dosage: 22OCT08,30OCT08,19NOV08,29DEC08,27MAR09,28MAR09,25SEP09.
     Route: 048
     Dates: start: 19950101
  8. DIOVAN HCT [Concomitant]
     Dosage: 1DF=160/125MG,22OCT08,30OCT08,19NOV08,29DEC08,27MAR09,28MAR09,25SEP09.
     Route: 048
     Dates: start: 20080220

REACTIONS (3)
  - ISCHAEMIC STROKE [None]
  - CARDIAC FAILURE CONGESTIVE [None]
  - PLEURAL HAEMORRHAGE [None]
